FAERS Safety Report 18517131 (Version 1)
Quarter: 2020Q4

REPORT INFORMATION
  Report Type: Spontaneous
  Country: IN (occurrence: IN)
  Receive Date: 20201118
  Receipt Date: 20201118
  Transmission Date: 20210114
  Serious: Yes (Other)
  Sender: FDA-Public Use
  Company Number: IN-B.I. PHARMACEUTICALS,INC./RIDGEFIELD-2020-BI-061032

PATIENT
  Age: 73 Year
  Sex: Female

DRUGS (1)
  1. XOVOLTIB [Suspect]
     Active Substance: AFATINIB
     Indication: PRODUCT USED FOR UNKNOWN INDICATION
     Dosage: 40 MG, 5 DAYS IN A WEEK FOR 3 MONTHS.
     Route: 065
     Dates: start: 201912

REACTIONS (5)
  - Chest pain [Unknown]
  - Diarrhoea [Unknown]
  - Furuncle [Unknown]
  - Lung neoplasm malignant [Unknown]
  - Metastases to adrenals [Unknown]

NARRATIVE: CASE EVENT DATE: 2020
